FAERS Safety Report 4818293-5 (Version None)
Quarter: 2005Q4

REPORT INFORMATION
  Report Type: 
  Country: None (occurrence: None)
  Receive Date: 20051031
  Receipt Date: 20051021
  Transmission Date: 20060501
  Serious: Yes (Other)
  Sender: FDA-Public Use
  Company Number: 2005JP002059

PATIENT
  Age: 68 Year
  Sex: Male

DRUGS (3)
  1. FUNGUARD(MICAFUNGIN) INJECTION [Suspect]
     Indication: BRONCHOPNEUMONIA
     Dosage: IV DRIP
     Route: 041
     Dates: start: 20050501
  2. GRANULOCYTE COLONY STIMULATING FACTOR(GRANULOCYTE COLONY STIMULATING F [Suspect]
     Dates: start: 20050501, end: 20050501
  3. IMMUNE GLOBULIN INTRAVENOUS (HUMAN) [Concomitant]

REACTIONS (8)
  - ACUTE RESPIRATORY DISTRESS SYNDROME [None]
  - HAEMODIALYSIS [None]
  - LIVER DISORDER [None]
  - LUNG INFILTRATION [None]
  - MULTI-ORGAN FAILURE [None]
  - RENAL FAILURE ACUTE [None]
  - RESPIRATORY FAILURE [None]
  - SEPTIC SHOCK [None]
